FAERS Safety Report 23649114 (Version 1)
Quarter: 2024Q1

REPORT INFORMATION
  Report Type: Spontaneous
  Country: US (occurrence: US)
  Receive Date: 20240319
  Receipt Date: 20240319
  Transmission Date: 20240409
  Serious: Yes (Other)
  Sender: FDA-Public Use
  Company Number: US-SA-SAC20240318000592

PATIENT
  Age: 61 Year
  Sex: Female

DRUGS (25)
  1. DUPIXENT [Suspect]
     Active Substance: DUPILUMAB
     Indication: Asthma
     Dosage: 300 MG, QOW
     Route: 058
     Dates: start: 20230330
  2. ALBUTEROL [Concomitant]
     Active Substance: ALBUTEROL
  3. FORMOTEROL [Concomitant]
     Active Substance: FORMOTEROL
  4. ATORVASTATIN [Concomitant]
     Active Substance: ATORVASTATIN
  5. ASPIRIN [Concomitant]
     Active Substance: ASPIRIN
  6. COSOPT [Concomitant]
     Active Substance: DORZOLAMIDE HYDROCHLORIDE\TIMOLOL MALEATE
  7. DILTIAZEM [Concomitant]
     Active Substance: DILTIAZEM
  8. DOXYCYCLINE [Concomitant]
     Active Substance: DOXYCYCLINE
  9. ESCITALOPRAM [Concomitant]
     Active Substance: ESCITALOPRAM OXALATE
  10. FAMOTIDINE [Concomitant]
     Active Substance: FAMOTIDINE
  11. GLIPIZIDE [Concomitant]
     Active Substance: GLIPIZIDE
  12. LATANOPROST [Concomitant]
     Active Substance: LATANOPROST
  13. METOPROLOL [Concomitant]
     Active Substance: METOPROLOL
  14. OZEMPIC [Concomitant]
     Active Substance: SEMAGLUTIDE
  15. PREDNISONE [Concomitant]
     Active Substance: PREDNISONE
  16. SINGULAIR [Concomitant]
     Active Substance: MONTELUKAST SODIUM
  17. TRELEGY ELLIPTA [Concomitant]
     Active Substance: FLUTICASONE FUROATE\UMECLIDINIUM BROMIDE\VILANTEROL TRIFENATATE
  18. TRIAMTERENE [Concomitant]
     Active Substance: TRIAMTERENE
  19. VITAMIN B12 [Concomitant]
     Active Substance: CYANOCOBALAMIN
  20. VITAMIN D3 [Concomitant]
     Active Substance: CHOLECALCIFEROL
  21. XARELTO [Concomitant]
     Active Substance: RIVAROXABAN
  22. BUDESONIDE [Concomitant]
     Active Substance: BUDESONIDE
  23. HYDROXYCHLOROQUINE [Concomitant]
     Active Substance: HYDROXYCHLOROQUINE
  24. LISINOPRILHYDROCHLOROTHIAZIDE RATIOPHARM [Concomitant]
  25. METFORMIN [Concomitant]
     Active Substance: METFORMIN HYDROCHLORIDE

REACTIONS (1)
  - Atrial fibrillation [Unknown]

NARRATIVE: CASE EVENT DATE: 20240313
